FAERS Safety Report 15706287 (Version 1)
Quarter: 2018Q4

REPORT INFORMATION
  Report Type: Spontaneous
  Country: JP (occurrence: JP)
  Receive Date: 20181210
  Receipt Date: 20181210
  Transmission Date: 20190205
  Serious: Yes (Other)
  Sender: FDA-Public Use
  Company Number: PHJP2018JP020430

PATIENT
  Age: 31 Year
  Sex: Male

DRUGS (1)
  1. TEGRETOL [Suspect]
     Active Substance: CARBAMAZEPINE
     Indication: STEVENS-JOHNSON SYNDROME
     Dosage: UNK
     Route: 048

REACTIONS (3)
  - Accidental exposure to product [Unknown]
  - Loss of consciousness [Unknown]
  - Rash [Unknown]
